FAERS Safety Report 11922864 (Version 2)
Quarter: 2016Q1

REPORT INFORMATION
  Report Type: Spontaneous
  Country: US (occurrence: US)
  Receive Date: 20160116
  Receipt Date: 20160120
  Transmission Date: 20160526
  Serious: No
  Sender: FDA-Public Use
  Company Number: PHEH2016US001100

PATIENT
  Sex: Female

DRUGS (1)
  1. FEMARA [Suspect]
     Active Substance: LETROZOLE
     Indication: PRODUCT USED FOR UNKNOWN INDICATION
     Dosage: 2.5 MG
     Route: 065

REACTIONS (6)
  - Alopecia [Unknown]
  - Musculoskeletal stiffness [Unknown]
  - Trigger finger [Unknown]
  - Sleep disorder [Unknown]
  - Peripheral coldness [Unknown]
  - Arthritis [Unknown]
